FAERS Safety Report 8541697 (Version 2)
Quarter: 2012Q4

REPORT INFORMATION
  Report Type: Report from Study
  Country: CA (occurrence: CA)
  Receive Date: 20120502
  Receipt Date: 20121219
  Transmission Date: 20130627
  Serious: Yes (Hospitalization)
  Sender: FDA-Public Use
  Company Number: CA-ABBOTT-12P-028-0930149-00

PATIENT
  Sex: Male
  Weight: 69.5 kg

DRUGS (1)
  1. HUMIRA [Suspect]
     Indication: CROHN^S DISEASE
     Route: 058
     Dates: start: 20100311

REACTIONS (2)
  - Vomiting [Recovered/Resolved]
  - Constipation [Recovered/Resolved]
